FAERS Safety Report 12481506 (Version 1)
Quarter: 2016Q2

REPORT INFORMATION
  Report Type: Spontaneous
  Country: US (occurrence: US)
  Receive Date: 20160620
  Receipt Date: 20160620
  Transmission Date: 20160815
  Serious: No
  Sender: FDA-Public Use
  Company Number: US-BAUSCH-BL-2016-000140

PATIENT
  Sex: Male
  Weight: 95.34 kg

DRUGS (2)
  1. PROVENGE [Suspect]
     Active Substance: SIPULEUCEL-T
     Indication: PROSTATE CANCER METASTATIC
     Route: 042
     Dates: start: 20151210, end: 20151210
  2. PROVENGE [Suspect]
     Active Substance: SIPULEUCEL-T
     Route: 042
     Dates: start: 20151221, end: 20151221

REACTIONS (4)
  - Wheezing [Unknown]
  - Dyspnoea [Unknown]
  - Productive cough [Unknown]
  - Influenza like illness [Unknown]
